FAERS Safety Report 25594493 (Version 1)
Quarter: 2025Q3

REPORT INFORMATION
  Report Type: Report from Study
  Country: EG (occurrence: EG)
  Receive Date: 20250723
  Receipt Date: 20250723
  Transmission Date: 20251020
  Serious: Yes (Hospitalization, Other)
  Sender: ALEXION PHARMACEUTICALS
  Company Number: EG-AstraZeneca-CH-00909845A

PATIENT
  Age: 77 Year
  Sex: Female

DRUGS (1)
  1. OLAPARIB [Suspect]
     Active Substance: OLAPARIB
     Indication: Ovarian repair
     Dosage: 600 MILLIGRAM, QD
     Dates: start: 20250531

REACTIONS (2)
  - Haemoglobin decreased [Unknown]
  - Blood bilirubin decreased [Unknown]

NARRATIVE: CASE EVENT DATE: 20250622
